FAERS Safety Report 5893918-4 (Version None)
Quarter: 2008Q3

REPORT INFORMATION
  Report Type: 
  Country: None (occurrence: None)
  Receive Date: 20080923
  Receipt Date: 20080911
  Transmission Date: 20090109
  Serious: Yes (Other)
  Sender: FDA-Public Use
  Company Number: US-ELI_LILLY_AND_COMPANY-US200809002826

PATIENT
  Sex: Female

DRUGS (2)
  1. HUMALOG [Suspect]
     Indication: DIABETES MELLITUS
     Dates: start: 19620101
  2. LANTUS [Concomitant]
     Dates: start: 19620101

REACTIONS (3)
  - ARTHROPATHY [None]
  - CORONARY ARTERIAL STENT INSERTION [None]
  - FAILURE OF IMPLANT [None]
